FAERS Safety Report 4747847-X (Version None)
Quarter: 2005Q3

REPORT INFORMATION
  Report Type: 
  Country: None (occurrence: None)
  Receive Date: 20050818
  Receipt Date: 20041201
  Transmission Date: 20060218
  Serious: No
  Sender: FDA-Public Use
  Company Number: US-BRISTOL-MYERS SQUIBB COMPANY-12782207

PATIENT
  Age: 62 Year
  Sex: Male

DRUGS (6)
  1. MEGACE [Suspect]
     Indication: DECREASED APPETITE
     Route: 048
     Dates: start: 20041101
  2. MEGACE [Suspect]
     Indication: WEIGHT DECREASED
     Route: 048
     Dates: start: 20041101
  3. CARBOPLATIN [Concomitant]
  4. GEMZAR [Concomitant]
  5. KYTRIL [Concomitant]
  6. DECADRON [Concomitant]

REACTIONS (1)
  - INCORRECT DOSE ADMINISTERED [None]
